FAERS Safety Report 20185097 (Version 1)
Quarter: 2021Q4

REPORT INFORMATION
  Report Type: Report from Study
  Country: DE (occurrence: DE)
  Receive Date: 20211215
  Receipt Date: 20211215
  Transmission Date: 20220303
  Serious: Yes (Hospitalization)
  Sender: FDA-Public Use
  Company Number: DE-TAKEDA-2021TUS078608

PATIENT
  Age: 25 Year
  Sex: Female

DRUGS (27)
  1. LANADELUMAB [Suspect]
     Active Substance: LANADELUMAB
     Indication: Hereditary angioedema
     Dosage: 300 MILLIGRAM, Q2WEEKS
     Route: 065
     Dates: start: 20210203
  2. CEFUROXIME AXETIL [Concomitant]
     Active Substance: CEFUROXIME AXETIL
     Indication: Bronchitis
     Dosage: 1000 MILLIGRAM
     Route: 048
     Dates: start: 20210724, end: 20210730
  3. Clindasol [Concomitant]
     Indication: Bronchitis
     Dosage: 600 MILLIGRAM
     Route: 048
     Dates: start: 20210702, end: 20210707
  4. Clindasol [Concomitant]
     Dosage: 1200 MILLIGRAM
     Route: 048
     Dates: start: 20210611, end: 20210616
  5. ACETYLCYSTEINE [Concomitant]
     Active Substance: ACETYLCYSTEINE
     Dosage: 1 DOSAGE FORM
     Route: 048
     Dates: start: 20210313, end: 20210313
  6. Nisita [Concomitant]
     Indication: Postoperative care
     Dosage: UNK
     Route: 045
     Dates: start: 20211204
  7. Cerazette [Concomitant]
     Indication: Contraception
     Dosage: 75 MICROGRAM
     Route: 048
     Dates: start: 2011
  8. CETIRIZINE [Concomitant]
     Active Substance: CETIRIZINE HYDROCHLORIDE
     Indication: Rhinitis allergic
     Dosage: 10 MILLIGRAM
     Route: 048
     Dates: start: 200006
  9. CETIRIZINE [Concomitant]
     Active Substance: CETIRIZINE HYDROCHLORIDE
     Indication: Allergy to animal
  10. CLINDAMYCIN [Concomitant]
     Active Substance: CLINDAMYCIN
     Indication: Sinusitis
     Dosage: 600 MILLIGRAM
     Route: 048
     Dates: start: 20211019, end: 20211024
  11. CLINDAMYCIN [Concomitant]
     Active Substance: CLINDAMYCIN
     Indication: Chronic sinusitis
     Dosage: 600 MILLIGRAM
     Route: 048
     Dates: start: 20211028, end: 20211111
  12. CALCIUM CARBONATE\SODIUM ALGINATE\SODIUM BICARBONATE [Concomitant]
     Active Substance: CALCIUM CARBONATE\SODIUM ALGINATE\SODIUM BICARBONATE
     Indication: Dyspepsia
     Dosage: 2 DOSAGE FORM
     Route: 048
     Dates: start: 201406
  13. PFIZER-BIONTECH COVID-19 VACCINE [Concomitant]
     Active Substance: TOZINAMERAN
     Indication: Prophylaxis
     Dosage: UNK
     Route: 030
     Dates: start: 20210410, end: 20210410
  14. PFIZER-BIONTECH COVID-19 VACCINE [Concomitant]
     Active Substance: TOZINAMERAN
     Dosage: UNK
     Route: 030
     Dates: start: 20210522, end: 20210522
  15. GLYCOL SALICYLATE [Concomitant]
     Active Substance: GLYCOL SALICYLATE
     Indication: Back pain
     Dosage: UNK
     Route: 061
     Dates: start: 20210309, end: 20210309
  16. LEVOFLOXACIN [Concomitant]
     Active Substance: LEVOFLOXACIN
     Indication: Sinusitis
     Dosage: 500 MILLIGRAM
     Route: 048
     Dates: start: 20210930, end: 20211006
  17. DEXPANTHENOL\XYLOMETAZOLINE HYDROCHLORIDE [Concomitant]
     Active Substance: DEXPANTHENOL\XYLOMETAZOLINE HYDROCHLORIDE
     Indication: Rhinitis allergic
     Dosage: UNK
     Route: 045
     Dates: start: 2000
  18. METAMIZOLE [Concomitant]
     Active Substance: METAMIZOLE
     Indication: Neck pain
     Dosage: 500 MILLIGRAM
     Route: 048
     Dates: start: 20210910, end: 20210910
  19. Omniflora N [Concomitant]
     Indication: Prophylaxis
     Dosage: 2 DOSAGE FORM
     Route: 048
     Dates: start: 20210611, end: 20210616
  20. ACETAMINOPHEN [Concomitant]
     Active Substance: ACETAMINOPHEN
     Indication: Nasopharyngitis
     Dosage: 500 MILLIGRAM
     Route: 048
     Dates: start: 2019
  21. ACETAMINOPHEN [Concomitant]
     Active Substance: ACETAMINOPHEN
     Indication: Headache
     Dosage: 500 MILLIGRAM
     Route: 048
     Dates: start: 20210210, end: 20210216
  22. ETHACRIDINE LACTATE [Concomitant]
     Active Substance: ETHACRIDINE LACTATE
     Indication: Injection site hypersensitivity
     Dosage: 2 MILLIGRAM
     Route: 061
     Dates: start: 20210526, end: 20210529
  23. ALBUTEROL [Concomitant]
     Active Substance: ALBUTEROL
     Indication: Asthma
     Dosage: UNK
     Route: 055
     Dates: start: 1998
  24. FLUTICASONE PROPIONATE\SALMETEROL XINAFOATE [Concomitant]
     Active Substance: FLUTICASONE PROPIONATE\SALMETEROL XINAFOATE
     Indication: Asthma
     Dosage: UNK
     Route: 055
     Dates: start: 1998
  25. TRIAMCINOLONE ACETONIDE [Concomitant]
     Active Substance: TRIAMCINOLONE ACETONIDE
     Indication: Injection site hypersensitivity
     Dosage: UNK
     Route: 061
     Dates: start: 20210415, end: 20210416
  26. TRIAMCINOLONE ACETONIDE [Concomitant]
     Active Substance: TRIAMCINOLONE ACETONIDE
     Dosage: UNK
     Route: 062
     Dates: start: 20210319, end: 20210321
  27. TRIAMCINOLONE ACETONIDE [Concomitant]
     Active Substance: TRIAMCINOLONE ACETONIDE
     Dosage: UNK
     Route: 062
     Dates: start: 20210331, end: 20210403

REACTIONS (1)
  - Chronic sinusitis [Recovered/Resolved]

NARRATIVE: CASE EVENT DATE: 20211202
